FAERS Safety Report 18053664 (Version 1)
Quarter: 2020Q3

REPORT INFORMATION
  Report Type: Spontaneous
  Country: ES (occurrence: ES)
  Receive Date: 20200722
  Receipt Date: 20200722
  Transmission Date: 20201103
  Serious: Yes (Life-Threatening)
  Sender: FDA-Public Use
  Company Number: ES-TEVA-2020-ES-1803144

PATIENT
  Age: 44 Year
  Sex: Male

DRUGS (3)
  1. HIDROXICLOROQUINA (2143A) [Suspect]
     Active Substance: HYDROXYCHLOROQUINE
     Indication: COVID-19 TREATMENT
     Dosage: 400 MG
     Route: 065
     Dates: start: 20200406, end: 20200414
  2. LOPINAVIR (1271A) [Suspect]
     Active Substance: LOPINAVIR
     Indication: COVID-19 TREATMENT
     Dosage: 4 DOSAGE FORMS DAILY; 200/50 EVERY 2 TABLETS EVERY 12 HOURS
     Route: 065
     Dates: start: 20200406, end: 20200409
  3. AZITROMICINA (7019A) [Suspect]
     Active Substance: AZITHROMYCIN
     Indication: COVID-19 TREATMENT
     Dosage: 500 MG / 24 THE FIRST DAY AND THEN LOW DOSE AT 250 MG / 24
     Route: 065
     Dates: start: 20200406, end: 20200414

REACTIONS (1)
  - Atrial fibrillation [Unknown]

NARRATIVE: CASE EVENT DATE: 20200421
